FAERS Safety Report 23868830 (Version 2)
Quarter: 2024Q2

REPORT INFORMATION
  Report Type: Spontaneous
  Country: US (occurrence: US)
  Receive Date: 20240517
  Receipt Date: 20240607
  Transmission Date: 20240716
  Serious: Yes (Other)
  Sender: FDA-Public Use
  Company Number: US-AMERICAN REGENT INC-2024001390

PATIENT
  Age: 42 Year
  Sex: Female

DRUGS (4)
  1. VENOFER [Suspect]
     Active Substance: IRON SUCROSE
     Indication: Heavy menstrual bleeding
     Dosage: 200 MILLIGRAM, SINGLE
     Route: 042
     Dates: start: 20240404, end: 20240404
  2. VENOFER [Suspect]
     Active Substance: IRON SUCROSE
     Indication: Polymenorrhoea
     Dosage: 200 MILLIGRAM, SINGLE
     Route: 042
     Dates: start: 20240409, end: 20240409
  3. VENOFER [Suspect]
     Active Substance: IRON SUCROSE
     Indication: Menstruation normal
     Dosage: 200 MILLIGRAM, SINGLE
     Route: 042
     Dates: start: 20240416, end: 20240416
  4. VENOFER [Suspect]
     Active Substance: IRON SUCROSE
     Indication: Iron deficiency anaemia

REACTIONS (2)
  - Hysterectomy [Unknown]
  - Off label use [Unknown]

NARRATIVE: CASE EVENT DATE: 20240404
